FAERS Safety Report 6557154-0 (Version None)
Quarter: 2010Q1

REPORT INFORMATION
  Report Type: 
  Country: None (occurrence: None)
  Receive Date: 20100126
  Receipt Date: 20100112
  Transmission Date: 20100710
  Serious: Yes (Hospitalization)
  Sender: FDA-Public Use
  Company Number: 004866

PATIENT
  Age: 2 Day
  Sex: Female

DRUGS (10)
  1. LEVETIRACETAM [Suspect]
     Dosage: 70MG/KG RECTAL, 20MG/KG VIA NASOASTRIC TUBE OTHER
  2. LORAZEPAM [Concomitant]
  3. FOSPHENYTOIN [Concomitant]
  4. PHENOBARBITAL TAB [Concomitant]
  5. MIDAZOLAM HCL [Concomitant]
  6. PYRIDOXINE [Concomitant]
  7. FOLINIC ACID [Concomitant]
  8. PROPOFOL [Concomitant]
  9. PENTOBARBITAL CAP [Concomitant]
  10. TOPAMAX [Concomitant]

REACTIONS (2)
  - NO THERAPEUTIC RESPONSE [None]
  - RECTAL HAEMORRHAGE [None]
